FAERS Safety Report 7251286-X (Version None)
Quarter: 2010Q4

REPORT INFORMATION
  Report Type: 
  Country: None (occurrence: None)
  Receive Date: 20101013
  Receipt Date: 20101005
  Transmission Date: 20110411
  Serious: Yes (Death, Hospitalization, Other)
  Sender: FDA-Public Use
  Company Number: US-144948

PATIENT
  Sex: Male

DRUGS (1)
  1. HEPAGAM B [Suspect]
     Indication: ANTIVIRAL PROPHYLAXIS
     Dosage: (10920 IU1X/2 WEEKS INTRAVENOUS (NOT OTHERWISE SPECIFIED))
     Route: 042

REACTIONS (7)
  - ABSCESS [None]
  - HEPATIC ARTERY THROMBOSIS [None]
  - HEPATITIS B ANTIBODY ABNORMAL [None]
  - MALABSORPTION [None]
  - MALAISE [None]
  - PYREXIA [None]
  - WEIGHT DECREASED [None]
